FAERS Safety Report 20860205 (Version 1)
Quarter: 2022Q2

REPORT INFORMATION
  Report Type: Spontaneous
  Country: US (occurrence: None)
  Receive Date: 20220520
  Receipt Date: 20220520
  Transmission Date: 20220721
  Serious: Yes (Hospitalization)
  Sender: FDA-Public Use
  Company Number: None

PATIENT
  Sex: Male
  Weight: 86.18 kg

DRUGS (6)
  1. CAPECITABINE [Suspect]
     Active Substance: CAPECITABINE
     Indication: Colon cancer
     Dosage: FREQUENCY : EVERY OTHER WEEK;?
     Route: 048
     Dates: end: 20220415
  2. BUSPRIONE [Concomitant]
  3. ELIQUIS [Concomitant]
     Active Substance: APIXABAN
  4. VISTARIL [Concomitant]
     Active Substance: HYDROXYZINE PAMOATE
  5. ZOFRAN [Concomitant]
     Active Substance: ONDANSETRON HYDROCHLORIDE
  6. DEXAMETHASONE [Concomitant]
     Active Substance: DEXAMETHASONE

REACTIONS (2)
  - Tumour perforation [None]
  - Abdominal sepsis [None]
